FAERS Safety Report 9087728 (Version 1)
Quarter: 2013Q1

REPORT INFORMATION
  Report Type: Spontaneous
  Country: US (occurrence: US)
  Receive Date: 20130201
  Receipt Date: 20130201
  Transmission Date: 20140127
  Serious: Yes (Death, Other)
  Sender: FDA-Public Use
  Company Number: US-JNJFOC-20130113068

PATIENT
  Sex: 0

DRUGS (3)
  1. CLADRIBINE [Suspect]
     Indication: MANTLE CELL LYMPHOMA
     Dosage: DAY 1-5 OF EVERY 28 DAYS FOR UP TO 6 CYCLCE
     Route: 042
  2. VORINOSTAT [Suspect]
     Indication: MANTLE CELL LYMPHOMA
     Dosage: DAY 1-14 EVERY 28 DAYS UP TO 6 CYCLES
     Route: 048
  3. RITUXIMAB [Suspect]
     Indication: MANTLE CELL LYMPHOMA
     Dosage: WEEKLY 4 TIMES, FOR CYCLE 1 AND 1 PER MONTH

REACTIONS (8)
  - Mantle cell lymphoma [Fatal]
  - Mantle cell lymphoma recurrent [Fatal]
  - Mantle cell lymphoma recurrent [Unknown]
  - Thrombocytopenia [Unknown]
  - Neutropenia [Unknown]
  - Fatigue [Unknown]
  - Decreased appetite [Unknown]
  - Dehydration [Unknown]
